FAERS Safety Report 16065279 (Version 1)
Quarter: 2019Q1

REPORT INFORMATION
  Report Type: Spontaneous
  Country: US (occurrence: US)
  Receive Date: 20190313
  Receipt Date: 20190313
  Transmission Date: 20190418
  Serious: Yes (Hospitalization, Other)
  Sender: FDA-Public Use
  Company Number: US-STRIDES ARCOLAB LIMITED-2019SP002194

PATIENT
  Age: 16 Year
  Sex: Male

DRUGS (1)
  1. IBUPROFEN. [Suspect]
     Active Substance: IBUPROFEN
     Indication: HUMERUS FRACTURE
     Dosage: UNK
     Route: 065

REACTIONS (8)
  - Peritonitis [Recovered/Resolved]
  - Abdominal rigidity [Recovered/Resolved]
  - Peptic ulcer perforation [Recovered/Resolved]
  - Abdominal pain [Recovered/Resolved]
  - Abdominal tenderness [Recovered/Resolved]
  - Intentional product misuse [Recovered/Resolved]
  - Vomiting [Recovered/Resolved]
  - Inflammation [Recovered/Resolved]
